FAERS Safety Report 8010763-4 (Version None)
Quarter: 2011Q4

REPORT INFORMATION
  Report Type: 
  Country: None (occurrence: None)
  Receive Date: 20111222
  Receipt Date: 20111209
  Transmission Date: 20120403
  Serious: Yes (Other)
  Sender: FDA-Public Use
  Company Number: MC201100436

PATIENT

DRUGS (1)
  1. ANGIOMAX [Suspect]
     Indication: VENTRICULAR ASSIST DEVICE INSERTION
     Dosage: SEE IMAGE
     Route: 042

REACTIONS (3)
  - POST PROCEDURAL HAEMORRHAGE [None]
  - ATRIAL THROMBOSIS [None]
  - OFF LABEL USE [None]
